FAERS Safety Report 9445174 (Version 1)
Quarter: 2013Q3

REPORT INFORMATION
  Report Type: Spontaneous
  Country: US (occurrence: US)
  Receive Date: 20130807
  Receipt Date: 20130807
  Transmission Date: 20140515
  Serious: Yes (Hospitalization)
  Sender: FDA-Public Use
  Company Number: US-GLAXOSMITHKLINE-A1036210A

PATIENT
  Age: 65 Year
  Sex: Male

DRUGS (1)
  1. PROMACTA [Suspect]
     Indication: PRODUCT USED FOR UNKNOWN INDICATION
     Dosage: 75MG UNKNOWN
     Route: 065
     Dates: start: 20091008

REACTIONS (1)
  - Hospitalisation [Not Recovered/Not Resolved]
